FAERS Safety Report 17439320 (Version 3)
Quarter: 2023Q4

REPORT INFORMATION
  Report Type: Spontaneous
  Country: US (occurrence: US)
  Receive Date: 20200220
  Receipt Date: 20231124
  Transmission Date: 20240110
  Serious: Yes (Hospitalization, Other)
  Sender: FDA-Public Use
  Company Number: US-MLMSERVICE-20200205-2153950-1

PATIENT
  Age: 66 Year
  Sex: Female

DRUGS (4)
  1. ALPRAZOLAM [Interacting]
     Active Substance: ALPRAZOLAM
     Indication: Anxiety
     Dosage: 1 MILLIGRAM, 3 TIMES A DAY
     Route: 065
  2. BUPROPION HYDROCHLORIDE [Interacting]
     Active Substance: BUPROPION HYDROCHLORIDE
     Indication: Smoking cessation therapy
     Dosage: 150 MILLIGRAM, ONCE A DAY (XL (EXTENDED-RELEASE))
     Route: 065
  3. LEVOTHYROXINE [Interacting]
     Active Substance: LEVOTHYROXINE
     Indication: Hypothyroidism
     Dosage: UNK (137-150 MG ALTERNATING DAILY.)
     Route: 065
  4. LORAZEPAM [Interacting]
     Active Substance: LORAZEPAM
     Indication: Product used for unknown indication
     Dosage: 2 MILLIGRAM
     Route: 042

REACTIONS (10)
  - Convulsive threshold lowered [Recovering/Resolving]
  - Seizure [Recovering/Resolving]
  - Withdrawal syndrome [Recovering/Resolving]
  - Drug interaction [Recovering/Resolving]
  - Mental status changes [Unknown]
  - Tachycardia [Unknown]
  - Hypertension [Unknown]
  - Restlessness [Recovering/Resolving]
  - Agitation [Recovering/Resolving]
  - Confusional state [Recovering/Resolving]
